FAERS Safety Report 5245403-0 (Version None)
Quarter: 2007Q1

REPORT INFORMATION
  Report Type: 
  Country: None (occurrence: None)
  Receive Date: 20070223
  Receipt Date: 20070209
  Transmission Date: 20070707
  Serious: Yes (Death, Hospitalization)
  Sender: FDA-Public Use
  Company Number: DE-BAXTER-2006BH014926

PATIENT
  Age: 69 Year
  Sex: Male
  Weight: 75 kg

DRUGS (5)
  1. RECOMBINATE [Suspect]
     Indication: HAEMOPHILIA
     Route: 065
     Dates: start: 20051002, end: 20051026
  2. RECOMBINATE [Suspect]
     Route: 065
     Dates: start: 20051002, end: 20051026
  3. RECOMBINATE [Suspect]
     Route: 065
     Dates: start: 20051002, end: 20051026
  4. RECOMBINATE [Suspect]
     Route: 065
     Dates: end: 20051002
  5. RECOMBINATE [Suspect]
     Route: 065
     Dates: start: 20061113, end: 20061101

REACTIONS (9)
  - ABDOMINAL HAEMATOMA [None]
  - CARDIOGENIC SHOCK [None]
  - FACTOR VIII INHIBITION [None]
  - MECHANICAL ILEUS [None]
  - PERITONITIS [None]
  - PULMONARY EMBOLISM [None]
  - RECTAL CANCER [None]
  - RENAL FAILURE ACUTE [None]
  - SEPSIS [None]
